FAERS Safety Report 24347327 (Version 2)
Quarter: 2025Q1

REPORT INFORMATION
  Report Type: Spontaneous
  Country: US (occurrence: US)
  Receive Date: 20240921
  Receipt Date: 20250307
  Transmission Date: 20250409
  Serious: No
  Sender: MERCK SHARP & DOHME LLC
  Company Number: US-009507513-2409USA004281

PATIENT
  Age: 79 Year
  Sex: Male

DRUGS (7)
  1. POSACONAZOLE [Suspect]
     Active Substance: POSACONAZOLE
     Indication: Scleritis
     Route: 048
  2. NATAMYCIN [Concomitant]
     Active Substance: NATAMYCIN
     Indication: Scleritis
     Route: 061
  3. AMPHOTERICIN B [Concomitant]
     Active Substance: AMPHOTERICIN B
     Indication: Scleritis
  4. VORICONAZOLE [Concomitant]
     Active Substance: VORICONAZOLE
     Indication: Scleritis
  5. VORICONAZOLE [Concomitant]
     Active Substance: VORICONAZOLE
     Indication: Scleritis
     Route: 042
  6. ROSE BENGAL [Concomitant]
     Indication: Scleritis
  7. VORICONAZOLE [Concomitant]
     Active Substance: VORICONAZOLE
     Indication: Scleritis
     Route: 048

REACTIONS (1)
  - Product use in unapproved indication [Unknown]
